FAERS Safety Report 11140078 (Version 1)
Quarter: 2015Q2

REPORT INFORMATION
  Report Type: Other
  Country: US (occurrence: US)
  Receive Date: 20150527
  Receipt Date: 20150527
  Transmission Date: 20150821
  Serious: No
  Sender: FDA-Public Use
  Company Number: US-ENDO PHARMACEUTICALS INC.-SPLN20140123

PATIENT
  Age: 7 Year
  Sex: Female
  Weight: 27.24 kg

DRUGS (1)
  1. SUPPRELIN LA [Suspect]
     Active Substance: HISTRELIN ACETATE
     Indication: PRECOCIOUS PUBERTY
     Route: 065
     Dates: start: 20141203

REACTIONS (6)
  - Rash [Recovering/Resolving]
  - Dermatitis [Recovering/Resolving]
  - Implant site rash [Recovered/Resolved]
  - Implant site vesicles [Recovered/Resolved]
  - Implant site urticaria [Recovered/Resolved]
  - Dermatitis contact [Recovering/Resolving]

NARRATIVE: CASE EVENT DATE: 20141203
